FAERS Safety Report 25125335 (Version 2)
Quarter: 2025Q2

REPORT INFORMATION
  Report Type: Spontaneous
  Country: US (occurrence: US)
  Receive Date: 20250326
  Receipt Date: 20250422
  Transmission Date: 20250717
  Serious: Yes (Other)
  Sender: TAKEDA
  Company Number: US-TAKEDA-2025TUS029511

PATIENT
  Sex: Female
  Weight: 64 kg

DRUGS (6)
  1. VYVANSE [Suspect]
     Active Substance: LISDEXAMFETAMINE DIMESYLATE
     Indication: Attention deficit hyperactivity disorder
  2. ADDERALL XR [Suspect]
     Active Substance: AMPHETAMINE ASPARTATE\AMPHETAMINE SULFATE\DEXTROAMPHETAMINE SACCHARATE\DEXTROAMPHETAMINE SULFATE
     Indication: Product used for unknown indication
  3. DAYTRANA [Suspect]
     Active Substance: METHYLPHENIDATE
     Indication: Attention deficit hyperactivity disorder
  4. DAYTRANA [Suspect]
     Active Substance: METHYLPHENIDATE
     Indication: Coeliac disease
  5. XELSTRYM [Suspect]
     Active Substance: DEXTROAMPHETAMINE
     Indication: Attention deficit hyperactivity disorder
  6. XELSTRYM [Suspect]
     Active Substance: DEXTROAMPHETAMINE
     Indication: Coeliac disease

REACTIONS (19)
  - Coeliac disease [Unknown]
  - Abdominal distension [Unknown]
  - Migraine [Unknown]
  - Brain fog [Unknown]
  - Inflammation [Unknown]
  - Dermatitis contact [Unknown]
  - Functional gastrointestinal disorder [Unknown]
  - Product availability issue [Unknown]
  - Fluid retention [Unknown]
  - Disturbance in attention [Unknown]
  - Gastrointestinal disorder [Unknown]
  - Impatience [Unknown]
  - Gastritis [Unknown]
  - Feeling abnormal [Unknown]
  - Drug ineffective [Unknown]
  - Abdominal discomfort [Unknown]
  - Urticaria [Recovered/Resolved]
  - Fatigue [Unknown]
  - Abdominal pain upper [Unknown]
